FAERS Safety Report 9075113 (Version 1)
Quarter: 2013Q1

REPORT INFORMATION
  Report Type: Spontaneous
  Country: US (occurrence: US)
  Receive Date: 20130129
  Receipt Date: 20130129
  Transmission Date: 20140127
  Serious: Yes (Other)
  Sender: FDA-Public Use
  Company Number: US-AMGEN-USASP2010006423

PATIENT
  Age: 68 Year
  Sex: Female

DRUGS (3)
  1. ENBREL [Suspect]
     Indication: RHEUMATOID ARTHRITIS
     Dosage: 50 MG, QWK
     Dates: start: 20100430
  2. ENBREL [Suspect]
     Dosage: 50 MG, QWK
     Dates: start: 20100530
  3. PREDNISONE [Concomitant]
     Dosage: UNK
     Dates: start: 20101106

REACTIONS (7)
  - Rheumatoid arthritis [Recovered/Resolved]
  - Vascular rupture [Recovered/Resolved]
  - Cataract [Recovered/Resolved]
  - Visual impairment [Not Recovered/Not Resolved]
  - Hypermetropia [Not Recovered/Not Resolved]
  - Gingival disorder [Unknown]
  - Nasopharyngitis [Not Recovered/Not Resolved]
